FAERS Safety Report 8059630-0 (Version None)
Quarter: 2012Q1

REPORT INFORMATION
  Report Type: 
  Country: None (occurrence: None)
  Receive Date: 20120119
  Receipt Date: 20120119
  Transmission Date: 20120608
  Serious: Yes (Life-Threatening)
  Sender: FDA-Public Use
  Company Number: None

PATIENT
  Age: 80 Year
  Sex: Male
  Weight: 108.9 kg

DRUGS (2)
  1. WARFARIN SODIUM [Suspect]
     Indication: PULMONARY EMBOLISM
     Dosage: 2.5 MG EVERY DAY PO
     Route: 048
     Dates: start: 20080224
  2. WARFARIN SODIUM [Suspect]
     Indication: ATRIAL FIBRILLATION
     Dosage: 2.5 MG EVERY DAY PO
     Route: 048
     Dates: start: 20080224

REACTIONS (7)
  - ANAEMIA [None]
  - SUBDURAL HAEMATOMA [None]
  - HAEMORRHAGE INTRACRANIAL [None]
  - FALL [None]
  - VERTEBROBASILAR INSUFFICIENCY [None]
  - UPPER GASTROINTESTINAL HAEMORRHAGE [None]
  - ORTHOSTATIC HYPOTENSION [None]
